FAERS Safety Report 8509815 (Version 2)
Quarter: 2012Q4

REPORT INFORMATION
  Report Type: 
  Country: CA (occurrence: CA)
  Receive Date: 20120413
  Receipt Date: 20121101
  Transmission Date: 20130627
  Serious: Yes (Hospitalization, Other)
  Sender: FDA-Public Use
  Company Number: PHHO2005CA13492

PATIENT
  Sex: Male

DRUGS (1)
  1. SANDOSTATIN LAR [Suspect]
     Indication: CARCINOID TUMOUR
     Dosage: 30 mg, QMO
     Dates: start: 20031222

REACTIONS (5)
  - Biliary tract disorder [Unknown]
  - Liver abscess [Unknown]
  - Nasopharyngitis [Unknown]
  - Hyperhidrosis [Unknown]
  - Diarrhoea [Unknown]
